FAERS Safety Report 4633433-9 (Version None)
Quarter: 2005Q2

REPORT INFORMATION
  Report Type: 
  Country: None (occurrence: None)
  Receive Date: 20050408
  Receipt Date: 20040301
  Transmission Date: 20051028
  Serious: Yes (Other)
  Sender: FDA-Public Use
  Company Number: 10145

PATIENT
  Age: 74 Year

DRUGS (4)
  1. METHOTREXATE [Suspect]
  2. CYTARABINE [Suspect]
  3. TOPOTECAN [Suspect]
  4. MYLOTARG [Suspect]

REACTIONS (1)
  - DRUG INEFFECTIVE [None]
